FAERS Safety Report 9331805 (Version 1)
Quarter: 2013Q2

REPORT INFORMATION
  Report Type: Spontaneous
  Country: KR (occurrence: KR)
  Receive Date: 20130605
  Receipt Date: 20130605
  Transmission Date: 20140414
  Serious: Yes (Hospitalization)
  Sender: FDA-Public Use
  Company Number: PHHY2013KR055788

PATIENT
  Age: 79 Year
  Sex: Female

DRUGS (1)
  1. KETOPROFEN [Suspect]
     Indication: ARTHRALGIA
     Route: 030

REACTIONS (4)
  - Embolia cutis medicamentosa [Recovered/Resolved]
  - Injection site pain [Recovered/Resolved]
  - Injection site induration [Recovered/Resolved]
  - Skin necrosis [Recovered/Resolved]
